FAERS Safety Report 6339783-2 (Version None)
Quarter: 2009Q3

REPORT INFORMATION
  Report Type: 
  Country: None (occurrence: None)
  Receive Date: 20090903
  Receipt Date: 20090827
  Transmission Date: 20100115
  Serious: Yes (Hospitalization)
  Sender: FDA-Public Use
  Company Number: US-ABBOTT-09P-163-0594078-00

PATIENT
  Sex: Female

DRUGS (4)
  1. SYNTHROID [Suspect]
     Indication: HYPOTHYROIDISM
     Dates: start: 19720101
  2. XANAX [Concomitant]
     Indication: INSOMNIA
     Dosage: UNKNOWN
  3. GENERIC PROSOM [Concomitant]
     Indication: INSOMNIA
  4. VITAMIN D [Concomitant]
     Indication: VITAMIN SUPPLEMENTATION
     Dosage: UNKNOWN

REACTIONS (15)
  - ABNORMAL FAECES [None]
  - ASTHENIA [None]
  - CARDIAC FAILURE CONGESTIVE [None]
  - COELIAC DISEASE [None]
  - DYSPNOEA [None]
  - FALL [None]
  - FEMUR FRACTURE [None]
  - FOOD CRAVING [None]
  - GENERALISED OEDEMA [None]
  - HEART RATE DECREASED [None]
  - HYPERTHYROIDISM [None]
  - LIMB DEFORMITY [None]
  - OEDEMA PERIPHERAL [None]
  - PAIN [None]
  - THYROIDITIS [None]
